FAERS Safety Report 13383775 (Version 2)
Quarter: 2017Q2

REPORT INFORMATION
  Report Type: Spontaneous
  Country: US (occurrence: US)
  Receive Date: 20170329
  Receipt Date: 20170418
  Transmission Date: 20170830
  Serious: Yes (Hospitalization)
  Sender: FDA-Public Use
  Company Number: US-VERTEX PHARMACEUTICALS-2017-001737

PATIENT
  Age: 28 Year
  Sex: Male

DRUGS (1)
  1. ORKAMBI [Suspect]
     Active Substance: IVACAFTOR\LUMACAFTOR
     Indication: CYSTIC FIBROSIS
     Dosage: 400/ 250 MG, BID
     Route: 048
     Dates: start: 20170105

REACTIONS (1)
  - Cystic fibrosis respiratory infection suppression [Recovering/Resolving]

NARRATIVE: CASE EVENT DATE: 20170320
